FAERS Safety Report 7505458-7 (Version None)
Quarter: 2011Q2

REPORT INFORMATION
  Report Type: 
  Country: None (occurrence: None)
  Receive Date: 20110526
  Receipt Date: 20110523
  Transmission Date: 20111010
  Serious: Yes (Death, Other)
  Sender: FDA-Public Use
  Company Number: PHHY2010MX65610

PATIENT
  Sex: Female

DRUGS (5)
  1. ALBUTEROL [Concomitant]
  2. AMBROXOL [Concomitant]
  3. LORATADINE [Concomitant]
  4. DIOVAN HCT [Suspect]
     Indication: HYPERTENSION
     Dosage: 160 MG VALS AND 25 MG HYDR, 1 DF DAILY
     Dates: start: 20060101
  5. TAMOXIFEN CITRATE [Concomitant]
     Dosage: UNK
     Dates: end: 20080101

REACTIONS (5)
  - BREAST CANCER [None]
  - METASTASES TO LIVER [None]
  - METASTASIS [None]
  - MALAISE [None]
  - FATIGUE [None]
